FAERS Safety Report 14452867 (Version 1)
Quarter: 2018Q1

REPORT INFORMATION
  Report Type: Spontaneous
  Country: US (occurrence: US)
  Receive Date: 20180129
  Receipt Date: 20180129
  Transmission Date: 20180509
  Serious: No
  Sender: FDA-Public Use
  Company Number: US-TEVA-792249ACC

PATIENT
  Sex: Female

DRUGS (2)
  1. NORTHERA [Interacting]
     Active Substance: DROXIDOPA
     Dosage: 300 MILLIGRAM DAILY;
     Route: 048
     Dates: start: 20170624
  2. METOPROLOL. [Suspect]
     Active Substance: METOPROLOL
     Indication: ATRIAL FIBRILLATION
     Route: 065

REACTIONS (1)
  - Drug interaction [Unknown]
